FAERS Safety Report 16223753 (Version 1)
Quarter: 2019Q2

REPORT INFORMATION
  Report Type: Spontaneous
  Country: IT (occurrence: IT)
  Receive Date: 20190422
  Receipt Date: 20190422
  Transmission Date: 20190711
  Serious: Yes (Hospitalization)
  Sender: FDA-Public Use
  Company Number: IT-PFIZER INC-2019167913

PATIENT
  Age: 37 Year
  Sex: Male

DRUGS (4)
  1. TALENTUM [MIDAZOLAM HYDROCHLORIDE] [Suspect]
     Active Substance: MIDAZOLAM HYDROCHLORIDE
     Indication: ANAESTHETIC PREMEDICATION
     Dosage: 5 MG, TOTAL
     Route: 042
     Dates: start: 20190328, end: 20190328
  2. CEFAZOLIN [Suspect]
     Active Substance: CEFAZOLIN
     Indication: ANTIBIOTIC PROPHYLAXIS
     Dosage: 2 G, TOTAL
     Route: 042
     Dates: start: 20190328, end: 20190328
  3. BUPIVACAINE. [Suspect]
     Active Substance: BUPIVACAINE
     Dosage: 0.5 %, TOTAL
     Route: 042
     Dates: start: 20190328, end: 20190328
  4. BUPIVACAINE. [Suspect]
     Active Substance: BUPIVACAINE
     Indication: ANAESTHETIC PREMEDICATION
     Dosage: 0.5 %, TOTAL
     Route: 042
     Dates: start: 20190328, end: 20190328

REACTIONS (2)
  - Bronchostenosis [Recovering/Resolving]
  - Laryngospasm [Recovering/Resolving]

NARRATIVE: CASE EVENT DATE: 20190328
